FAERS Safety Report 8612433-8 (Version None)
Quarter: 2012Q3

REPORT INFORMATION
  Report Type: 
  Country: None (occurrence: None)
  Receive Date: 20120822
  Receipt Date: 20120820
  Transmission Date: 20120928
  Serious: Yes (Life-Threatening, Hospitalization, Other)
  Sender: FDA-Public Use
  Company Number: JP-PFIZER INC-2012141559

PATIENT
  Age: 87 Year
  Sex: Female
  Weight: 42.4 kg

DRUGS (3)
  1. ZITHROMAX [Suspect]
     Indication: RESPIRATORY TRACT INFECTION
     Dosage: 500 MG, 1X/DAY
     Route: 041
     Dates: start: 20120604, end: 20120608
  2. OMEGACIN [Suspect]
     Indication: PNEUMONIA
     Dosage: UNK
     Dates: start: 20120604, end: 20120610
  3. ZITHROMAX [Suspect]
     Indication: PNEUMONIA

REACTIONS (4)
  - LONG QT SYNDROME [None]
  - STRESS CARDIOMYOPATHY [None]
  - RENAL IMPAIRMENT [None]
  - ATRIOVENTRICULAR BLOCK [None]
